FAERS Safety Report 12826541 (Version 1)
Quarter: 2016Q4

REPORT INFORMATION
  Report Type: Spontaneous
  Country: US (occurrence: US)
  Receive Date: 20161006
  Receipt Date: 20161006
  Transmission Date: 20170207
  Serious: No
  Sender: FDA-Public Use
  Company Number: US-JAZZ-2016-US-012860

PATIENT
  Sex: Male

DRUGS (27)
  1. XYREM [Suspect]
     Active Substance: SODIUM OXYBATE
     Indication: CATAPLEXY
     Dosage: DOSE ADJUSTMENTS
     Route: 048
     Dates: start: 200506, end: 200607
  2. COMBIVENT [Concomitant]
     Active Substance: ALBUTEROL SULFATE\IPRATROPIUM BROMIDE
  3. MAGNESIUM OXIDE. [Concomitant]
     Active Substance: MAGNESIUM OXIDE
  4. MULTIVITAMINS [Concomitant]
     Active Substance: VITAMINS
  5. OMEPRAZOLE. [Concomitant]
     Active Substance: OMEPRAZOLE
  6. NIFEDIPINE. [Concomitant]
     Active Substance: NIFEDIPINE
  7. NITROGLYCERIN. [Concomitant]
     Active Substance: NITROGLYCERIN
  8. ATORVASTATIN [Concomitant]
     Active Substance: ATORVASTATIN
  9. FISH OIL [Concomitant]
     Active Substance: FISH OIL
  10. LISINOPRIL. [Concomitant]
     Active Substance: LISINOPRIL
  11. MELOXICAM. [Concomitant]
     Active Substance: MELOXICAM
  12. DORZOLAMIDE TIMOLOL [Concomitant]
     Active Substance: DORZOLAMIDE
  13. RANEXA [Concomitant]
     Active Substance: RANOLAZINE
  14. ASPIRIN EC [Concomitant]
     Active Substance: ASPIRIN
  15. TAMSULOSIN HCL [Concomitant]
     Active Substance: TAMSULOSIN
  16. VITAMIN E [Concomitant]
     Active Substance: .ALPHA.-TOCOPHEROL
  17. XYREM [Suspect]
     Active Substance: SODIUM OXYBATE
     Indication: NARCOLEPSY
     Dosage: 2.25 G, BID
     Route: 048
     Dates: start: 200505, end: 200506
  18. ADDERALL XR [Concomitant]
     Active Substance: AMPHETAMINE ASPARTATE\AMPHETAMINE SULFATE\DEXTROAMPHETAMINE SACCHARATE\DEXTROAMPHETAMINE SULFATE
  19. LASIX [Concomitant]
     Active Substance: FUROSEMIDE
  20. MENTHOL. [Concomitant]
     Active Substance: MENTHOL
  21. METOPROLOL TARTRATE. [Concomitant]
     Active Substance: METOPROLOL TARTRATE
  22. VITAMIN D [Concomitant]
     Active Substance: CHOLECALCIFEROL
  23. CALCIUM +D [Concomitant]
     Active Substance: CALCIUM\VITAMIN D
  24. CLOPIDOGREL [Concomitant]
     Active Substance: CLOPIDOGREL BISULFATE
  25. ISOSORBIDE MONONITRATE. [Concomitant]
     Active Substance: ISOSORBIDE MONONITRATE
  26. HYPROMELLOSE [Concomitant]
     Active Substance: HYPROMELLOSES
  27. XYREM [Suspect]
     Active Substance: SODIUM OXYBATE
     Dosage: 6.75 G, BID
     Route: 048
     Dates: start: 200607

REACTIONS (1)
  - Gastrooesophageal reflux disease [Recovering/Resolving]
